FAERS Safety Report 9025071 (Version 1)
Quarter: 2013Q1

REPORT INFORMATION
  Report Type: Spontaneous
  Country: US (occurrence: US)
  Receive Date: 20130121
  Receipt Date: 20130121
  Transmission Date: 20140127
  Serious: Yes (Other)
  Sender: FDA-Public Use
  Company Number: US-SANOFI-AVENTIS-2013SA002853

PATIENT
  Sex: Female

DRUGS (2)
  1. LANTUS [Suspect]
     Dosage: DOSE:18 UNIT(S)
     Route: 058
  2. LANTUS [Suspect]
     Dosage: DOSE:30 UNIT(S)
     Route: 058

REACTIONS (2)
  - Renal failure [Unknown]
  - Blood glucose increased [Unknown]
